FAERS Safety Report 18215953 (Version 1)
Quarter: 2020Q3

REPORT INFORMATION
  Report Type: Spontaneous
  Country: None (occurrence: US)
  Receive Date: 20200831
  Receipt Date: 20200831
  Transmission Date: 20201103
  Serious: No
  Sender: FDA-Public Use
  Company Number: US-WELLSTAT THERAPEUTICS CORPORATION-2089269

PATIENT
  Age: 15 Year
  Sex: Male
  Weight: 50.34 kg

DRUGS (1)
  1. XURIDEN [Suspect]
     Active Substance: URIDINE TRIACETATE
     Indication: PURINE METABOLISM DISORDER
     Route: 048
     Dates: start: 20190409, end: 20200603

REACTIONS (1)
  - Tic [Unknown]
